FAERS Safety Report 16181913 (Version 1)
Quarter: 2019Q2

REPORT INFORMATION
  Report Type: Spontaneous
  Country: US (occurrence: US)
  Receive Date: 20190410
  Receipt Date: 20190410
  Transmission Date: 20190711
  Serious: Yes (Other)
  Sender: FDA-Public Use
  Company Number: US-PFIZER INC-2019143762

PATIENT
  Age: 69 Year
  Sex: Female

DRUGS (21)
  1. MIRAPEX [Concomitant]
     Active Substance: PRAMIPEXOLE DIHYDROCHLORIDE
     Dosage: 1 MG, 4X/DAY
  2. LOSARTAN. [Concomitant]
     Active Substance: LOSARTAN
     Dosage: 50 MG, 2X/DAY
  3. IRON [Concomitant]
     Active Substance: IRON
  4. ZANAFLEX [Concomitant]
     Active Substance: TIZANIDINE HYDROCHLORIDE
     Dosage: 12 MG, 1X/DAY
  5. NUPLAZID [Concomitant]
     Active Substance: PIMAVANSERIN TARTRATE
     Dosage: 4 MG, 1X/DAY
  6. ZOFRAN [Concomitant]
     Active Substance: ONDANSETRON HYDROCHLORIDE
     Dosage: 4 MG, AS NEEDED
  7. VIT D [Concomitant]
     Active Substance: VITAMIN D NOS
  8. VITAMIN B12 [Concomitant]
     Active Substance: CYANOCOBALAMIN
  9. KLONOPIN [Concomitant]
     Active Substance: CLONAZEPAM
     Dosage: 1 MG, 2X/DAY
  10. PERCOCET [OXYCODONE HYDROCHLORIDE;OXYCODONE TEREPHTHALATE;PARACETAMOL] [Concomitant]
     Active Substance: ACETAMINOPHEN\OXYCODONE HYDROCHLORIDE\OXYCODONE TEREPHTHALATE
     Dosage: 10 MG, 3X/DAY
  11. ANBESOL REGULAR STRENGTH GEL [Suspect]
     Active Substance: BENZOCAINE
     Route: 047
  12. DOXEPIN [Concomitant]
     Active Substance: DOXEPIN
     Dosage: 10 MG, 1X/DAY
  13. OSMOLEX [Concomitant]
     Indication: PARKINSON^S DISEASE
     Dosage: 129 MG, 1X/DAY
     Route: 048
     Dates: start: 20190211, end: 201903
  14. OSMOLEX [Concomitant]
     Dosage: 193 MG, 1X/DAY
     Route: 048
     Dates: start: 20190307
  15. CARBIDOPA LEVODOPA [Concomitant]
     Active Substance: CARBIDOPA\LEVODOPA
  16. ZOLOFT [Concomitant]
     Active Substance: SERTRALINE HYDROCHLORIDE
  17. DOXYCYCLINE. [Concomitant]
     Active Substance: DOXYCYCLINE
  18. TEGRETOL [Concomitant]
     Active Substance: CARBAMAZEPINE
  19. AMLODIPINE [Concomitant]
     Active Substance: AMLODIPINE BESYLATE
     Dosage: 5 MG, 1X/DAY
  20. TOPAMAX [Concomitant]
     Active Substance: TOPIRAMATE
  21. BABY ASPIRIN [Concomitant]
     Active Substance: ASPIRIN

REACTIONS (4)
  - Eye burns [Unknown]
  - Chemical burns of eye [Unknown]
  - Accidental exposure to product [Unknown]
  - Wrong product administered [Unknown]
